FAERS Safety Report 9582697 (Version 1)
Quarter: 2013Q4

REPORT INFORMATION
  Report Type: Spontaneous
  Country: US (occurrence: US)
  Receive Date: 20131002
  Receipt Date: 20131002
  Transmission Date: 20140711
  Serious: No
  Sender: FDA-Public Use
  Company Number: US-AMGEN-USASP2013041855

PATIENT
  Age: 77 Year
  Sex: Female

DRUGS (14)
  1. ENBREL [Suspect]
     Indication: PRODUCT USED FOR UNKNOWN INDICATION
     Dosage: 50 MG, EVERY SEVEN DAYS
     Route: 058
  2. PREDNISONE [Concomitant]
     Dosage: UNK
  3. AMLODIPINE [Concomitant]
     Dosage: 2.5 MG, UNK
  4. PRIMIDONE [Concomitant]
     Dosage: 50 MG, UNK
  5. CITRACAL                           /00751520/ [Concomitant]
     Dosage: UNK
  6. VITAMIN D                          /00107901/ [Concomitant]
     Dosage: UNK
  7. SPIRONOLACTON [Concomitant]
     Dosage: 25 MG, UNK
  8. BYSTOLIC [Concomitant]
     Dosage: 2.5 MG, UNK
  9. ADVIL                              /00044201/ [Concomitant]
     Dosage: 200 MG, UNK
  10. SULFASALAZIN [Concomitant]
     Dosage: 500 MG, UNK
  11. MAGNESIUM [Concomitant]
     Dosage: 200 MG, UNK
  12. TURMERIC                           /01079602/ [Concomitant]
     Dosage: 500 MG, UNK
  13. MULTIVITAMINS, PLAIN [Concomitant]
     Dosage: UNK
  14. VITAMIN C                          /00008001/ [Concomitant]
     Dosage: 100 MG, UNK

REACTIONS (1)
  - Drug ineffective [Unknown]
